FAERS Safety Report 4523773-6 (Version None)
Quarter: 2004Q4

REPORT INFORMATION
  Report Type: 
  Country: None (occurrence: None)
  Receive Date: 20041119
  Receipt Date: 20040825
  Transmission Date: 20050328
  Serious: No
  Sender: FDA-Public Use
  Company Number: PHEH2004US09184

PATIENT
  Age: 52 Year
  Sex: Female

DRUGS (6)
  1. ZELNORM [Suspect]
     Indication: IRRITABLE BOWEL SYNDROME
     Dosage: 6 MG, BID, ORAL
     Route: 048
     Dates: start: 20040701
  2. PREMARIN [Concomitant]
  3. PROMETRIUM [Concomitant]
  4. DIOVAN [Concomitant]
  5. BUMEX [Concomitant]
  6. CARDURA [Concomitant]

REACTIONS (1)
  - ALOPECIA [None]
